FAERS Safety Report 13488833 (Version 2)
Quarter: 2017Q4

REPORT INFORMATION
  Report Type: Spontaneous
  Country: JP (occurrence: JP)
  Receive Date: 20170427
  Receipt Date: 20171020
  Transmission Date: 20180320
  Serious: Yes (Death, Hospitalization)
  Sender: FDA-Public Use
  Company Number: JP-GLAXOSMITHKLINE-JP2017JPN059227

PATIENT
  Age: 74 Year
  Sex: Male

DRUGS (3)
  1. REQUIP [Suspect]
     Active Substance: ROPINIROLE HYDROCHLORIDE
     Indication: PARKINSON^S DISEASE
     Dosage: UNK
     Route: 048
  2. REQUIP [Suspect]
     Active Substance: ROPINIROLE HYDROCHLORIDE
     Indication: PARKINSON^S DISEASE
     Dosage: UNK
     Route: 048
  3. SELEGILINE HYDROCHLORIDE. [Concomitant]
     Active Substance: SELEGILINE HYDROCHLORIDE
     Indication: PARKINSON^S DISEASE
     Dosage: UNK

REACTIONS (6)
  - Gait disturbance [Fatal]
  - On and off phenomenon [Recovering/Resolving]
  - Orthostatic hypotension [Recovering/Resolving]
  - Fall [Recovering/Resolving]
  - Dizziness postural [Recovering/Resolving]
  - Disease progression [Recovering/Resolving]
